FAERS Safety Report 24956361 (Version 1)
Quarter: 2025Q1

REPORT INFORMATION
  Report Type: Spontaneous
  Country: US (occurrence: US)
  Receive Date: 20250211
  Receipt Date: 20250211
  Transmission Date: 20250409
  Serious: No
  Sender: Haleon PLC
  Company Number: US-HALEON-2227234

PATIENT

DRUGS (2)
  1. NICODERM CQ [Suspect]
     Active Substance: NICOTINE
     Indication: Smoking cessation therapy
     Dates: start: 20250202
  2. NICORETTE [Suspect]
     Active Substance: NICOTINE
     Indication: Smoking cessation therapy

REACTIONS (6)
  - Application site rash [Unknown]
  - Feeling abnormal [Unknown]
  - Application site pain [Unknown]
  - Dizziness [Unknown]
  - Drug ineffective [Unknown]
  - Wrong technique in product usage process [Unknown]
